FAERS Safety Report 14720841 (Version 1)
Quarter: 2018Q1

REPORT INFORMATION
  Report Type: Spontaneous
  Country: US (occurrence: US)
  Receive Date: 20180330
  Receipt Date: 20180330
  Transmission Date: 20180509
  Serious: Yes (Hospitalization)
  Sender: FDA-Public Use
  Company Number: None

PATIENT
  Sex: Male

DRUGS (9)
  1. SIROLIMUS. [Suspect]
     Active Substance: SIROLIMUS
     Indication: TRANSPLANT
     Route: 048
     Dates: start: 20170208
  2. ALENDRONATE [Concomitant]
     Active Substance: ALENDRONATE SODIUM
  3. DOCUSATE [Concomitant]
     Active Substance: DOCUSATE
  4. METOPROLOL TARTRATE. [Concomitant]
     Active Substance: METOPROLOL TARTRATE
  5. MYCOPHENOLATE [Suspect]
     Active Substance: MYCOPHENOLIC ACID
     Indication: TRANSPLANT
     Route: 048
     Dates: start: 20170208
  6. ADVIL [Concomitant]
     Active Substance: IBUPROFEN
  7. GABAPENTIN. [Concomitant]
     Active Substance: GABAPENTIN
  8. ASPIRIN. [Concomitant]
     Active Substance: ASPIRIN
  9. VITAMIN D3 [Concomitant]
     Active Substance: CHOLECALCIFEROL

REACTIONS (3)
  - Fall [None]
  - Drug dose omission [None]
  - Haemorrhage [None]
